FAERS Safety Report 22250316 (Version 1)
Quarter: 2023Q2

REPORT INFORMATION
  Report Type: Spontaneous
  Country: AU (occurrence: AU)
  Receive Date: 20230425
  Receipt Date: 20230425
  Transmission Date: 20230722
  Serious: Yes (Other)
  Sender: FDA-Public Use
  Company Number: None

PATIENT
  Age: 37 Year
  Sex: Female

DRUGS (1)
  1. CERTOLIZUMAB PEGOL [Suspect]
     Active Substance: CERTOLIZUMAB PEGOL
     Indication: Product used for unknown indication
     Dosage: UNK

REACTIONS (18)
  - Cholecystectomy [Unknown]
  - Road traffic accident [Unknown]
  - Anxiety [Unknown]
  - Back pain [Unknown]
  - Contusion [Unknown]
  - Fatigue [Unknown]
  - Feeling hot [Unknown]
  - Gallbladder disorder [Unknown]
  - Headache [Unknown]
  - Hypoaesthesia [Unknown]
  - Injection site bruising [Unknown]
  - Injection site haemorrhage [Unknown]
  - Insomnia [Unknown]
  - Neck pain [Unknown]
  - Sinusitis [Unknown]
  - Stress [Unknown]
  - Tremor [Unknown]
  - Incorrect dose administered by device [Unknown]
